FAERS Safety Report 8316926 (Version 4)
Quarter: 2012Q4

REPORT INFORMATION
  Report Type: 
  Country: FR (occurrence: FR)
  Receive Date: 20111230
  Receipt Date: 20120928
  Transmission Date: 20130627
  Serious: Yes (Hospitalization)
  Sender: FDA-Public Use
  Company Number: FR-ROCHE-1024339

PATIENT
  Sex: Male

DRUGS (5)
  1. PEGASYS [Suspect]
     Indication: MYELOFIBROSIS
     Route: 058
     Dates: start: 201102
  2. PEGASYS [Suspect]
     Route: 058
     Dates: start: 201105
  3. PEGASYS [Suspect]
     Route: 058
     Dates: start: 201108, end: 201111
  4. FLUDEX [Concomitant]
     Route: 048
  5. KARDEGIC [Concomitant]
     Route: 048

REACTIONS (1)
  - Porphyria non-acute [Recovered/Resolved]
